FAERS Safety Report 7860271-6 (Version None)
Quarter: 2011Q4

REPORT INFORMATION
  Report Type: 
  Country: None (occurrence: None)
  Receive Date: 20111027
  Receipt Date: 20111024
  Transmission Date: 20120403
  Serious: Yes (Hospitalization)
  Sender: FDA-Public Use
  Company Number: US-B.I. PHARMACEUTICALS,INC./RIDGEFIELD-2011-BP-23551BP

PATIENT
  Age: 88 Year
  Sex: Female

DRUGS (13)
  1. PRADAXA [Suspect]
     Dates: start: 20110921, end: 20111004
  2. LANOXIN [Concomitant]
  3. ARICEPT [Concomitant]
     Dosage: 10 MG
  4. PERIACTIN [Concomitant]
     Dosage: 8 MG
  5. VYTORIN [Concomitant]
  6. PRILOSEC [Concomitant]
     Dosage: 20 MG
  7. NAMENDA [Concomitant]
     Dosage: 20 MG
  8. AMITIZA [Concomitant]
     Dosage: 16 MCG
  9. CALCIUM + D [Concomitant]
  10. CELEBREX [Concomitant]
     Dosage: 200 MG
     Dates: end: 20111004
  11. LEXAPRO [Concomitant]
  12. ENABLEX [Concomitant]
     Dosage: 15 MG
  13. VITAMIN D [Concomitant]

REACTIONS (1)
  - LOWER GASTROINTESTINAL HAEMORRHAGE [None]
